FAERS Safety Report 5016122-0 (Version None)
Quarter: 2006Q2

REPORT INFORMATION
  Report Type: 
  Country: None (occurrence: None)
  Receive Date: 20060601
  Receipt Date: 20060529
  Transmission Date: 20061013
  Serious: Yes (Life-Threatening, Hospitalization)
  Sender: FDA-Public Use
  Company Number: DK-BOEHRINGER INGELHEIM PHARMACEUTICALS, INC.-2006-SW-00238DB

PATIENT
  Age: 39 Year
  Sex: Female

DRUGS (2)
  1. SPIRIVA [Suspect]
     Indication: ASTHMA
     Route: 055
  2. SYMBICORT [Concomitant]
     Indication: ASTHMA

REACTIONS (2)
  - ASTHMA [None]
  - RESPIRATORY FAILURE [None]
